FAERS Safety Report 6827597-6 (Version None)
Quarter: 2010Q3

REPORT INFORMATION
  Report Type: 
  Country: None (occurrence: None)
  Receive Date: 20100709
  Receipt Date: 20070118
  Transmission Date: 20110219
  Serious: No
  Sender: FDA-Public Use
  Company Number: US-PFIZER INC-2007005902

PATIENT
  Sex: Female
  Weight: 86.18 kg

DRUGS (3)
  1. CHANTIX [Suspect]
     Indication: SMOKING CESSATION THERAPY
     Dates: start: 20070101
  2. CALCIUM/MINERALS/VITAMIN D [Concomitant]
     Indication: MUSCLE SPASMS
  3. VITAMINS [Concomitant]

REACTIONS (2)
  - MUSCLE SPASMS [None]
  - POLLAKIURIA [None]
